FAERS Safety Report 7312656-4 (Version None)
Quarter: 2011Q1

REPORT INFORMATION
  Report Type: 
  Country: None (occurrence: None)
  Receive Date: 20110224
  Receipt Date: 20110131
  Transmission Date: 20110831
  Serious: No
  Sender: FDA-Public Use
  Company Number: US-MYLANLABS-2011S1000296

PATIENT
  Age: 68 Year
  Sex: Female

DRUGS (7)
  1. METOPROLOL SUCCINATE [Concomitant]
  2. SIMVASTATIN [Concomitant]
  3. ASPIRIN [Concomitant]
  4. LANSOPRAZOLE [Suspect]
     Route: 048
     Dates: start: 20100901, end: 20101201
  5. TOPROL-XL [Concomitant]
  6. LANSOPRAZOLE [Suspect]
     Indication: GASTROOESOPHAGEAL REFLUX DISEASE
     Route: 048
     Dates: start: 20100901, end: 20101201
  7. CALTRATE [Concomitant]

REACTIONS (5)
  - ERYTHEMA [None]
  - BURNING SENSATION [None]
  - FLUSHING [None]
  - RASH [None]
  - PRURITUS [None]
